FAERS Safety Report 23599860 (Version 2)
Quarter: 2024Q2

REPORT INFORMATION
  Report Type: Report from Study
  Country: US (occurrence: US)
  Receive Date: 20240306
  Receipt Date: 20240514
  Transmission Date: 20240716
  Serious: Yes (Other)
  Sender: FDA-Public Use
  Company Number: US-002147023-NVSC2024US047485

PATIENT
  Sex: Female

DRUGS (1)
  1. KESIMPTA [Suspect]
     Active Substance: OFATUMUMAB
     Indication: Progressive multiple sclerosis
     Dosage: UNK
     Route: 065

REACTIONS (8)
  - Spinal stroke [Unknown]
  - Multiple sclerosis [Unknown]
  - Pain in extremity [Recovered/Resolved]
  - Balance disorder [Unknown]
  - Vertigo [Unknown]
  - Central nervous system lesion [Unknown]
  - Hypertension [Unknown]
  - Pyrexia [Unknown]
